FAERS Safety Report 5887341-6 (Version None)
Quarter: 2008Q3

REPORT INFORMATION
  Report Type: 
  Country: None (occurrence: None)
  Receive Date: 20080918
  Receipt Date: 20080908
  Transmission Date: 20090109
  Serious: Yes (Other)
  Sender: FDA-Public Use
  Company Number: CA-JNJFOC-20080602978

PATIENT
  Sex: Female
  Weight: 51.71 kg

DRUGS (5)
  1. REMICADE [Suspect]
     Route: 042
  2. REMICADE [Suspect]
     Route: 042
  3. REMICADE [Suspect]
     Indication: COLITIS ULCERATIVE
     Dosage: RECEIVED 9INFUSIONS
     Route: 042
  4. CORTIFOAM [Concomitant]
     Route: 054
  5. ASACOL [Concomitant]
     Indication: COLITIS ULCERATIVE
     Route: 048

REACTIONS (4)
  - ABDOMINAL PAIN [None]
  - ANXIETY [None]
  - DIARRHOEA [None]
  - VOMITING [None]
